FAERS Safety Report 6481012-3 (Version None)
Quarter: 2009Q4

REPORT INFORMATION
  Report Type: 
  Country: None (occurrence: None)
  Receive Date: 20091208
  Receipt Date: 20091130
  Transmission Date: 20100525
  Serious: Yes (Other)
  Sender: FDA-Public Use
  Company Number: PHHY2009JP52130

PATIENT
  Age: 75 Year
  Sex: Male

DRUGS (8)
  1. NEORAL [Suspect]
     Indication: MYELODYSPLASTIC SYNDROME
     Dosage: 50 MG, TID
     Route: 048
     Dates: start: 20091010
  2. NEORAL [Suspect]
     Dosage: 100 MG
     Route: 048
  3. PURSENNID [Suspect]
     Indication: CONSTIPATION
     Dosage: 12 MG
     Route: 048
  4. PURSENNID [Suspect]
     Dosage: 24 MG
     Route: 048
  5. PURSENNID [Suspect]
     Dosage: 18 MG
     Route: 048
  6. PREDNISOLONE [Concomitant]
     Indication: MYELODYSPLASTIC SYNDROME
     Dosage: 6 DF, UNK
     Route: 048
     Dates: start: 20090301
  7. PREDNISOLONE [Concomitant]
     Dosage: UNK
     Route: 048
  8. PRIMOBOLAN [Concomitant]
     Indication: MYELODYSPLASTIC SYNDROME
     Dosage: UNK
     Route: 048
     Dates: start: 20090101

REACTIONS (13)
  - BLOOD PRESSURE INCREASED [None]
  - BLOOD URINE [None]
  - CONSTIPATION [None]
  - DIARRHOEA [None]
  - HAEMORRHAGE SUBCUTANEOUS [None]
  - HOT FLUSH [None]
  - OEDEMA PERIPHERAL [None]
  - PALPITATIONS [None]
  - RECTAL TENESMUS [None]
  - THERAPEUTIC RESPONSE DECREASED [None]
  - URINE OUTPUT DECREASED [None]
  - VISUAL ACUITY REDUCED TRANSIENTLY [None]
  - VITREOUS FLOATERS [None]
